FAERS Safety Report 7538888-8 (Version None)
Quarter: 2011Q2

REPORT INFORMATION
  Report Type: 
  Country: None (occurrence: None)
  Receive Date: 20110610
  Receipt Date: 20110527
  Transmission Date: 20111010
  Serious: Yes (Other)
  Sender: FDA-Public Use
  Company Number: AU-JNJFOC-20110510986

PATIENT
  Sex: Female

DRUGS (4)
  1. STELARA [Suspect]
     Route: 058
     Dates: start: 20110525
  2. STELARA [Suspect]
     Indication: PSORIASIS
     Route: 058
     Dates: start: 20110302
  3. STELARA [Suspect]
     Route: 058
     Dates: start: 20101110
  4. STELARA [Suspect]
     Route: 058
     Dates: start: 20101208

REACTIONS (3)
  - PSORIASIS [None]
  - DEPRESSION [None]
  - TYPE 2 DIABETES MELLITUS [None]
